FAERS Safety Report 10965854 (Version 1)
Quarter: 2015Q1

REPORT INFORMATION
  Report Type: Spontaneous
  Country: GB (occurrence: GB)
  Receive Date: 20150330
  Receipt Date: 20150330
  Transmission Date: 20150721
  Serious: Yes (Hospitalization, Other)
  Sender: FDA-Public Use
  Company Number: GB-UCBSA-2015009800

PATIENT
  Age: 23 Year
  Sex: Female
  Weight: 68 kg

DRUGS (1)
  1. KEPPRA [Suspect]
     Active Substance: LEVETIRACETAM
     Indication: TEMPORAL LOBE EPILEPSY
     Dosage: 500 MG, 2X/DAY (BID)
     Route: 048
     Dates: start: 20140913, end: 20150216

REACTIONS (8)
  - Aggression [Recovered/Resolved]
  - Mental impairment [Unknown]
  - Depression [Unknown]
  - Depressed mood [Unknown]
  - Anger [Recovered/Resolved]
  - Amnesia [Not Recovered/Not Resolved]
  - Suicidal ideation [Recovered/Resolved]
  - Aphasia [Unknown]

NARRATIVE: CASE EVENT DATE: 20141013
